FAERS Safety Report 8306947-8 (Version None)
Quarter: 2012Q2

REPORT INFORMATION
  Report Type: 
  Country: None (occurrence: None)
  Receive Date: 20120420
  Receipt Date: 20120403
  Transmission Date: 20120825
  Serious: No
  Sender: FDA-Public Use
  Company Number: US-1190322

PATIENT
  Age: 83 Year
  Sex: Female

DRUGS (3)
  1. TRIFLURIDINE [Suspect]
     Route: 047
  2. PATADAY [Concomitant]
  3. MURO 128 [Concomitant]

REACTIONS (2)
  - VISION BLURRED [None]
  - EYE PAIN [None]
